FAERS Safety Report 23268934 (Version 3)
Quarter: 2024Q2

REPORT INFORMATION
  Report Type: Report from Study
  Country: US (occurrence: US)
  Receive Date: 20231206
  Receipt Date: 20240618
  Transmission Date: 20240716
  Serious: Yes (Other)
  Sender: FDA-Public Use
  Company Number: US-002147023-NVSC2023US008106

PATIENT
  Age: 28 Year
  Sex: Male
  Weight: 77.098 kg

DRUGS (11)
  1. TREPROSTINIL [Suspect]
     Active Substance: TREPROSTINIL
     Dosage: 46 NG/KG/ MIN, CONTINUOUS
     Route: 042
     Dates: start: 20230118
  2. TREPROSTINIL [Suspect]
     Active Substance: TREPROSTINIL
     Dosage: CONT, 46 NG/KG/ MI N
     Route: 042
     Dates: start: 20221006
  3. TREPROSTINIL [Suspect]
     Active Substance: TREPROSTINIL
     Dosage: UNK, 81 NG/KG/ MIN, CONT
     Route: 058
  4. TREPROSTINIL [Suspect]
     Active Substance: TREPROSTINIL
     Indication: Hypertension
     Dosage: UNK, 81 NG/KG/ MIN, CONT, STRENGTH: 10 MG/ML
     Route: 058
     Dates: start: 20221006
  5. TREPROSTINIL [Suspect]
     Active Substance: TREPROSTINIL
     Dosage: UNK, 54 NG/KG/ MIN, CONT
     Route: 042
  6. TREPROSTINIL [Suspect]
     Active Substance: TREPROSTINIL
     Dosage: UNK, 30 NG/KG/ MIN, CONT
     Route: 042
     Dates: start: 20220610
  7. TREPROSTINIL [Suspect]
     Active Substance: TREPROSTINIL
     Dosage: UNK, 33.5, NG/KG/ MIN, CONT
     Route: 042
     Dates: start: 20221006
  8. TREPROSTINIL [Suspect]
     Active Substance: TREPROSTINIL
     Dosage: UNK, CONT(40 NG/KG/ MI N )
     Route: 042
     Dates: start: 20221006
  9. TREPROSTINIL [Suspect]
     Active Substance: TREPROSTINIL
     Dosage: UNK, 34 NG/KG/ MIN, CONT
     Route: 042
     Dates: start: 20220610
  10. ADCIRCA [Concomitant]
     Active Substance: TADALAFIL
     Indication: Pulmonary arterial hypertension
     Dosage: UNK
     Route: 065
  11. OPSUMIT [Concomitant]
     Active Substance: MACITENTAN
     Indication: Pulmonary arterial hypertension
     Dosage: UNK
     Route: 065

REACTIONS (19)
  - Suicidal ideation [Unknown]
  - Loss of consciousness [Unknown]
  - Vascular device occlusion [Unknown]
  - Dysphonia [Unknown]
  - Fall [Unknown]
  - Joint injury [Unknown]
  - Chest discomfort [Unknown]
  - Abdominal discomfort [Unknown]
  - Surgery [Unknown]
  - Fungal skin infection [Unknown]
  - Injection site pain [Unknown]
  - Dizziness [Not Recovered/Not Resolved]
  - Asthenia [Unknown]
  - Headache [Unknown]
  - Chest pain [Unknown]
  - Cough [Unknown]
  - Abdominal pain [Unknown]
  - Diarrhoea [Unknown]
  - Nausea [Unknown]

NARRATIVE: CASE EVENT DATE: 20230524
